FAERS Safety Report 15634765 (Version 1)
Quarter: 2018Q4

REPORT INFORMATION
  Report Type: Spontaneous
  Country: US (occurrence: US)
  Receive Date: 20181119
  Receipt Date: 20181119
  Transmission Date: 20190205
  Serious: No
  Sender: FDA-Public Use
  Company Number: US-PFIZER INC-2018462986

PATIENT
  Age: 54 Year
  Sex: Female
  Weight: 77 kg

DRUGS (3)
  1. IBRANCE [Suspect]
     Active Substance: PALBOCICLIB
     Dosage: 100 MG, UNK
  2. IBRANCE [Suspect]
     Active Substance: PALBOCICLIB
     Indication: BREAST CANCER METASTATIC
     Dosage: 125 MG, CYCLIC (1 CAPSULE BY MOUTH FOR 21 DAYS AND THEN OFF 7 DAYS )
     Route: 048
     Dates: start: 201602
  3. LETROZOLE. [Suspect]
     Active Substance: LETROZOLE
     Indication: BREAST CANCER METASTATIC
     Dosage: 2.5 MG, CYCLIC (ONCE A DAY FOR A 28 DAY CYCLE)
     Route: 048

REACTIONS (4)
  - Red blood cell count decreased [Not Recovered/Not Resolved]
  - Tumour marker abnormal [Not Recovered/Not Resolved]
  - Condition aggravated [Unknown]
  - Memory impairment [Not Recovered/Not Resolved]

NARRATIVE: CASE EVENT DATE: 201602
